FAERS Safety Report 9204253 (Version 1)
Quarter: 2013Q1

REPORT INFORMATION
  Report Type: Spontaneous
  Country: US (occurrence: None)
  Receive Date: 20120709
  Receipt Date: 20120709
  Transmission Date: 20140127
  Serious: No
  Sender: FDA-Public Use
  Company Number: 2012HGS-003452

PATIENT
  Age: 41 Year
  Sex: Female
  Weight: 108.86 kg

DRUGS (4)
  1. BENLYSTA [Suspect]
     Dosage: 1 IN 28 D
     Route: 041
  2. PREDNISONE (PREDNISONE) (PREDNISONE) [Concomitant]
  3. METHOTREXATE (METHOTREXATE) (METHOTREXATE) [Concomitant]
  4. ULTRAM (TRAMADOL HYDROCHLORIDE) (TRAMADOL HYDROCHLORIDE) [Concomitant]

REACTIONS (1)
  - Upper respiratory tract infection [None]
